FAERS Safety Report 15756312 (Version 2)
Quarter: 2020Q3

REPORT INFORMATION
  Report Type: Report from Study
  Country: US (occurrence: US)
  Receive Date: 20181224
  Receipt Date: 20200710
  Transmission Date: 20201102
  Serious: Yes (Other)
  Sender: FDA-Public Use
  Company Number: PHHY2018US192537

PATIENT
  Age: 51 Year
  Sex: Female

DRUGS (1)
  1. GILENYA [Suspect]
     Active Substance: FINGOLIMOD HYDROCHLORIDE
     Indication: MULTIPLE SCLEROSIS
     Dosage: UNK, QD
     Route: 048

REACTIONS (5)
  - Palpitations [Unknown]
  - Lymphocyte count decreased [Unknown]
  - Lymphopenia [Recovered/Resolved]
  - Vision blurred [Unknown]
  - Muscle twitching [Unknown]

NARRATIVE: CASE EVENT DATE: 20181023
